FAERS Safety Report 9303692 (Version 1)
Quarter: 2013Q2

REPORT INFORMATION
  Report Type: Spontaneous
  Country: US (occurrence: US)
  Receive Date: 20130522
  Receipt Date: 20130522
  Transmission Date: 20140414
  Serious: Yes (Hospitalization)
  Sender: FDA-Public Use
  Company Number: US-GLAXOSMITHKLINE-A0688717A

PATIENT
  Age: 54 Year
  Sex: Male
  Weight: 97.7 kg

DRUGS (10)
  1. AVANDIA [Suspect]
     Indication: TYPE 2 DIABETES MELLITUS
     Dosage: 8MG PER DAY
     Route: 048
     Dates: start: 20040607, end: 20050708
  2. ACARBOSE [Concomitant]
     Dates: start: 20041206, end: 20041207
  3. NIACIN [Concomitant]
  4. METOPROLOL [Concomitant]
  5. NOVOLIN [Concomitant]
  6. AVAPRO [Concomitant]
  7. AVALIDE [Concomitant]
  8. VICODIN [Concomitant]
     Dates: start: 200408
  9. VIAGRA [Concomitant]
  10. HCTZ [Concomitant]

REACTIONS (3)
  - Myocardial infarction [Recovered/Resolved]
  - Pain [Unknown]
  - Injury [Unknown]
